FAERS Safety Report 4562393-4 (Version None)
Quarter: 2005Q1

REPORT INFORMATION
  Report Type: 
  Country: None (occurrence: None)
  Receive Date: 20050127
  Receipt Date: 20040422
  Transmission Date: 20050727
  Serious: No
  Sender: FDA-Public Use
  Company Number: US-BRISTOL-MYERS SQUIBB COMPANY-12568440

PATIENT
  Sex: Female

DRUGS (1)
  1. KENALOG [Suspect]
     Indication: MULTIPLE ALLERGIES
     Dosage: INJECTION GIVEN IN LEFT SIDE OF BUTTOCKS
     Route: 051
     Dates: start: 20030801

REACTIONS (3)
  - INJECTION SITE ATROPHY [None]
  - INJECTION SITE IRRITATION [None]
  - INJECTION SITE PAIN [None]
